FAERS Safety Report 5592336-6 (Version None)
Quarter: 2007Q4

REPORT INFORMATION
  Report Type: 
  Country: None (occurrence: None)
  Receive Date: 20071217
  Receipt Date: 20071112
  Transmission Date: 20080405
  Serious: No
  Sender: FDA-Public Use
  Company Number: BDI-010555

PATIENT
  Age: 68 Year
  Sex: Female
  Weight: 68 kg

DRUGS (4)
  1. MULTIHANCE [Suspect]
     Indication: BREAST DISORDER
     Dosage: 20 ML ONCE IV
     Route: 042
     Dates: start: 20071109, end: 20071109
  2. MULTIHANCE [Suspect]
     Indication: NUCLEAR MAGNETIC RESONANCE IMAGING
     Dosage: 20 ML ONCE IV
     Route: 042
     Dates: start: 20071109, end: 20071109
  3. MULTIHANCE [Suspect]
     Indication: BREAST DISORDER
     Dosage: 10 ML ONCE IV
     Route: 042
     Dates: start: 20071109, end: 20071109
  4. MULTIHANCE [Suspect]
     Indication: NUCLEAR MAGNETIC RESONANCE IMAGING
     Dosage: 10 ML ONCE IV
     Route: 042
     Dates: start: 20071109, end: 20071109

REACTIONS (1)
  - RETCHING [None]
